FAERS Safety Report 17780532 (Version 2)
Quarter: 2020Q2

REPORT INFORMATION
  Report Type: Spontaneous
  Country: US (occurrence: US)
  Receive Date: 20200514
  Receipt Date: 20200611
  Transmission Date: 20200714
  Serious: No
  Sender: FDA-Public Use
  Company Number: US-ASTRAZENECA-2020SE60209

PATIENT
  Age: 872 Month
  Sex: Male
  Weight: 77.1 kg

DRUGS (13)
  1. LOSARTAN POTASSIUM. [Concomitant]
     Active Substance: LOSARTAN POTASSIUM
     Indication: BLOOD PRESSURE MEASUREMENT
     Dates: start: 2018
  2. FASENRA [Suspect]
     Active Substance: BENRALIZUMAB
     Indication: ASTHMA
     Dosage: EVERY EIGHT WEEKS
     Route: 058
     Dates: start: 20190910
  3. FLONASE [Concomitant]
     Active Substance: FLUTICASONE PROPIONATE
     Indication: SEASONAL ALLERGY
     Dosage: AS REQUIRED
     Route: 045
  4. AZELISTINE HYDROCHLORIDE [Concomitant]
     Indication: ANTIALLERGIC THERAPY
     Route: 045
  5. IPRAPROPIRUM BROMIDE [Concomitant]
     Indication: ASTHMA
     Route: 045
  6. METFORMIN [Concomitant]
     Active Substance: METFORMIN HYDROCHLORIDE
     Indication: TYPE 2 DIABETES MELLITUS
  7. NYSTATIN. [Concomitant]
     Active Substance: NYSTATIN
     Route: 048
     Dates: start: 202002
  8. ITRACONAZOLE. [Concomitant]
     Active Substance: ITRACONAZOLE
     Route: 048
     Dates: start: 202002
  9. FOLIC ACID. [Concomitant]
     Active Substance: FOLIC ACID
     Indication: FOETAL METHOTREXATE SYNDROME
     Route: 048
  10. METHOTREXATE. [Concomitant]
     Active Substance: METHOTREXATE
     Indication: RHEUMATOID ARTHRITIS
     Route: 048
  11. HYDROXYCHLOROQUINE [Concomitant]
     Active Substance: HYDROXYCHLOROQUINE
     Indication: RHEUMATOID ARTHRITIS
     Route: 048
     Dates: start: 202002
  12. LATANOPROST. [Concomitant]
     Active Substance: LATANOPROST
     Indication: GLAUCOMA
     Route: 048
  13. CLOTRIMAZOLE. [Concomitant]
     Active Substance: CLOTRIMAZOLE
     Route: 048
     Dates: start: 202002

REACTIONS (5)
  - Abdominal discomfort [Unknown]
  - Candida infection [Not Recovered/Not Resolved]
  - Fungal infection [Unknown]
  - Inappropriate schedule of product administration [Unknown]
  - Immune system disorder [Unknown]

NARRATIVE: CASE EVENT DATE: 2020
